FAERS Safety Report 17439732 (Version 8)
Quarter: 2020Q4

REPORT INFORMATION
  Report Type: Other
  Country: CA (occurrence: CA)
  Receive Date: 20200220
  Receipt Date: 20201028
  Transmission Date: 20210113
  Serious: Yes (Other)
  Sender: FDA-Public Use
  Company Number: CA-APOTEX-2020AP007654

PATIENT
  Sex: Female

DRUGS (16)
  1. PREGABALIN. [Suspect]
     Active Substance: PREGABALIN
     Indication: PRODUCT USED FOR UNKNOWN INDICATION
     Dosage: UNK
     Route: 065
  2. METHOTREXATE. [Suspect]
     Active Substance: METHOTREXATE
     Indication: RHEUMATOID ARTHRITIS
     Dosage: 15 MG, UNK
     Route: 042
  3. LYRICA [Suspect]
     Active Substance: PREGABALIN
     Indication: RHEUMATOID ARTHRITIS
     Dosage: UNK
     Route: 048
  4. RITUXIMAB. [Suspect]
     Active Substance: RITUXIMAB
     Dosage: 1000 MG, UNK
     Route: 042
  5. ACTEMRA [Suspect]
     Active Substance: TOCILIZUMAB
     Indication: RHEUMATOID ARTHRITIS
     Dosage: UNK
     Route: 042
  6. RITUXIMAB. [Suspect]
     Active Substance: RITUXIMAB
     Indication: RHEUMATOID ARTHRITIS
     Dosage: 1000 MG, QD
     Route: 042
  7. RITUXAN [Suspect]
     Active Substance: RITUXIMAB
     Indication: RHEUMATOID ARTHRITIS
     Dosage: 1000 MG, UNK
     Route: 042
  8. XELJANZ [Suspect]
     Active Substance: TOFACITINIB CITRATE
     Indication: PRODUCT USED FOR UNKNOWN INDICATION
     Dosage: UNK
     Route: 065
  9. GOLD;IRON;POTASSIUM PHOSPHATE DIBASIC;SILICON [Suspect]
     Active Substance: ELECTROLYTES NOS\MINERALS
     Indication: RHEUMATOID ARTHRITIS
     Dosage: UNK
     Route: 065
  10. RADIOACTIVE GOLD [Suspect]
     Active Substance: GOLD AU-198
     Indication: RHEUMATOID ARTHRITIS
     Dosage: UNK
     Route: 065
  11. HUMIRA [Suspect]
     Active Substance: ADALIMUMAB
     Indication: RHEUMATOID ARTHRITIS
     Dosage: UNK
     Route: 058
  12. ORENCIA [Suspect]
     Active Substance: ABATACEPT
     Indication: RHEUMATOID ARTHRITIS
     Dosage: UNK
     Route: 058
  13. DICLOFENAC [Suspect]
     Active Substance: DICLOFENAC
     Indication: RHEUMATOID ARTHRITIS
     Dosage: UNK
     Route: 065
  14. DICLOFENAC POTASSIUM. [Suspect]
     Active Substance: DICLOFENAC POTASSIUM
     Indication: PRODUCT USED FOR UNKNOWN INDICATION
     Dosage: UNK
     Route: 065
  15. LYRICA [Suspect]
     Active Substance: PREGABALIN
     Indication: ARTHRITIS
  16. RITUXIMAB. [Suspect]
     Active Substance: RITUXIMAB
     Dosage: 1000 MILLIGRAM, QD
     Route: 041

REACTIONS (19)
  - Product use issue [Not Recovered/Not Resolved]
  - Joint stiffness [Not Recovered/Not Resolved]
  - Contraindicated product administered [Not Recovered/Not Resolved]
  - Product use in unapproved indication [Not Recovered/Not Resolved]
  - Treatment failure [Not Recovered/Not Resolved]
  - Rash [Not Recovered/Not Resolved]
  - Skin lesion [Not Recovered/Not Resolved]
  - Drug ineffective [Not Recovered/Not Resolved]
  - Infection [Not Recovered/Not Resolved]
  - Herpes zoster [Not Recovered/Not Resolved]
  - Off label use [Not Recovered/Not Resolved]
  - Synovitis [Not Recovered/Not Resolved]
  - Drug eruption [Not Recovered/Not Resolved]
  - Rheumatoid arthritis [Not Recovered/Not Resolved]
  - Pain [Not Recovered/Not Resolved]
  - Sleep disorder [Not Recovered/Not Resolved]
  - Musculoskeletal stiffness [Not Recovered/Not Resolved]
  - Disease progression [Not Recovered/Not Resolved]
  - Pain in extremity [Not Recovered/Not Resolved]
